FAERS Safety Report 8122275-8 (Version None)
Quarter: 2012Q1

REPORT INFORMATION
  Report Type: 
  Country: None (occurrence: None)
  Receive Date: 20120208
  Receipt Date: 20120127
  Transmission Date: 20120608
  Serious: Yes (Hospitalization)
  Sender: FDA-Public Use
  Company Number: US-ELI_LILLY_AND_COMPANY-US201112005603

PATIENT
  Sex: Female

DRUGS (3)
  1. PREDNISONE [Concomitant]
  2. AGRENOX [Concomitant]
  3. FORTEO [Suspect]
     Indication: OSTEOPOROSIS
     Dosage: 20 UG, QD
     Dates: start: 20111205

REACTIONS (3)
  - DYSPNOEA [None]
  - HEADACHE [None]
  - MALAISE [None]
